FAERS Safety Report 25883203 (Version 1)
Quarter: 2025Q4

REPORT INFORMATION
  Report Type: Spontaneous
  Country: US (occurrence: US)
  Receive Date: 20251006
  Receipt Date: 20251006
  Transmission Date: 20260118
  Serious: Yes (Other)
  Sender: COOPERSURGICAL
  Company Number: US-COOPERSURGICAL, INC.-2025CPS007021

PATIENT
  Age: 29 Year
  Sex: Female
  Weight: 52.154 kg

DRUGS (1)
  1. PARAGARD T 380A [Suspect]
     Active Substance: COPPER
     Indication: Contraception
     Dosage: UNK
     Route: 015
     Dates: start: 20171207

REACTIONS (14)
  - Uterine injury [Recovered/Resolved]
  - Device breakage [Unknown]
  - Foreign body in reproductive tract [Unknown]
  - Complication of device removal [Unknown]
  - Embedded device [Unknown]
  - Procedural pain [Recovered/Resolved]
  - Emotional distress [Recovered/Resolved]
  - Generalised anxiety disorder [Unknown]
  - Major depression [Unknown]
  - Chlamydial infection [Recovered/Resolved]
  - Psychological trauma [Unknown]
  - Vulvovaginal candidiasis [Not Recovered/Not Resolved]
  - Device expulsion [Recovered/Resolved]
  - Fungal infection [Not Recovered/Not Resolved]

NARRATIVE: CASE EVENT DATE: 20220701
